FAERS Safety Report 24737668 (Version 1)
Quarter: 2024Q4

REPORT INFORMATION
  Report Type: Spontaneous
  Country: US (occurrence: None)
  Receive Date: 20241213
  Receipt Date: 20241213
  Transmission Date: 20250115
  Serious: Yes (Hospitalization, Other)
  Sender: Public
  Company Number: None

PATIENT
  Age: 64 Year
  Sex: Male

DRUGS (1)
  1. CABOMETYX [Suspect]
     Active Substance: CABOZANTINIB S-MALATE
     Dates: start: 20241129, end: 20241213

REACTIONS (8)
  - Weight decreased [None]
  - Plicated tongue [None]
  - Taste disorder [None]
  - Decreased appetite [None]
  - Vision blurred [None]
  - Headache [None]
  - Irritability [None]
  - Therapy interrupted [None]

NARRATIVE: CASE EVENT DATE: 20241213
